FAERS Safety Report 7561633-7 (Version None)
Quarter: 2011Q2

REPORT INFORMATION
  Report Type: 
  Country: None (occurrence: None)
  Receive Date: 20110621
  Receipt Date: 20110614
  Transmission Date: 20111010
  Serious: Yes (Hospitalization)
  Sender: FDA-Public Use
  Company Number: US-US-EMD SERONO, INC.-7010039

PATIENT
  Sex: Female

DRUGS (1)
  1. REBIF [Suspect]
     Indication: MULTIPLE SCLEROSIS
     Route: 058
     Dates: start: 20100210, end: 20110401

REACTIONS (8)
  - URINARY RETENTION [None]
  - TACHYCARDIA [None]
  - MULTIPLE SCLEROSIS RELAPSE [None]
  - PROTEINURIA [None]
  - FATIGUE [None]
  - CARDIAC DISORDER [None]
  - OPTIC NEURITIS [None]
  - HEMIPARESIS [None]
